FAERS Safety Report 12704234 (Version 2)
Quarter: 2016Q3

REPORT INFORMATION
  Report Type: Spontaneous
  Country: CH (occurrence: CH)
  Receive Date: 20160831
  Receipt Date: 20160901
  Transmission Date: 20161109
  Serious: Yes (Hospitalization)
  Sender: FDA-Public Use
  Company Number: CH-DSJP-DSE-2016-128552

PATIENT

DRUGS (7)
  1. QUILONORM                          /00033703/ [Suspect]
     Active Substance: LITHIUM ACETATE
     Indication: SCHIZOAFFECTIVE DISORDER
     Dosage: 675 MG, QD
     Route: 048
     Dates: start: 2005, end: 20160806
  2. QUILONORM                          /00033703/ [Suspect]
     Active Substance: LITHIUM ACETATE
     Dosage: UNK
     Route: 048
     Dates: start: 201608
  3. OLMETEC 10 MG [Suspect]
     Active Substance: OLMESARTAN MEDOXOMIL
     Indication: PRODUCT USED FOR UNKNOWN INDICATION
     Dosage: 10 MG, QD
     Route: 048
     Dates: end: 20160806
  4. LAMICTAL [Concomitant]
     Active Substance: LAMOTRIGINE
     Indication: PRODUCT USED FOR UNKNOWN INDICATION
  5. ZYPREXA [Concomitant]
     Active Substance: OLANZAPINE
     Indication: PRODUCT USED FOR UNKNOWN INDICATION
  6. ABILIFY [Concomitant]
     Active Substance: ARIPIPRAZOLE
     Indication: PRODUCT USED FOR UNKNOWN INDICATION
  7. EFFEXOR [Concomitant]
     Active Substance: VENLAFAXINE HYDROCHLORIDE
     Indication: PRODUCT USED FOR UNKNOWN INDICATION

REACTIONS (5)
  - Toxicity to various agents [Recovered/Resolved]
  - Acute kidney injury [Recovering/Resolving]
  - Antipsychotic drug level above therapeutic [Recovered/Resolved]
  - Diabetes insipidus [Unknown]
  - Nephropathy [Unknown]

NARRATIVE: CASE EVENT DATE: 2016
